FAERS Safety Report 23495206 (Version 4)
Quarter: 2024Q4

REPORT INFORMATION
  Report Type: Report from Study
  Country: CO (occurrence: CO)
  Receive Date: 20240207
  Receipt Date: 20241211
  Transmission Date: 20250115
  Serious: Yes (Death, Hospitalization, Other)
  Sender: ASTELLAS
  Company Number: CO-ASTELLAS-2024US003641

PATIENT
  Age: 64 Year
  Sex: Male
  Weight: 45 kg

DRUGS (3)
  1. PROGRAF [Suspect]
     Active Substance: TACROLIMUS
     Indication: Heart transplant
     Route: 048
  2. PROGRAF [Suspect]
     Active Substance: TACROLIMUS
     Dosage: 1 MG, ONCE DAILY
     Route: 048
     Dates: start: 20230907
  3. CARVEDILOL [Concomitant]
     Active Substance: CARVEDILOL
     Indication: Product used for unknown indication
     Route: 065

REACTIONS (6)
  - Death [Fatal]
  - Arteritis [Recovered/Resolved]
  - Pneumonia bacterial [Recovered/Resolved]
  - Kidney infection [Recovered/Resolved]
  - Bacterial infection [Recovered/Resolved]
  - Nosocomial infection [Recovered/Resolved]

NARRATIVE: CASE EVENT DATE: 20230907
